FAERS Safety Report 9360124 (Version 1)
Quarter: 2013Q2

REPORT INFORMATION
  Report Type: Spontaneous
  Country: US (occurrence: US)
  Receive Date: 20130621
  Receipt Date: 20130621
  Transmission Date: 20140414
  Serious: No
  Sender: FDA-Public Use
  Company Number: US-PFIZER INC-2013184713

PATIENT
  Age: 83 Year
  Sex: Female

DRUGS (3)
  1. ADVIL [Suspect]
     Indication: BACK PAIN
     Dosage: UNK
     Dates: start: 201306
  2. ADVIL [Suspect]
     Indication: ARTHRALGIA
  3. ALEVE [Suspect]
     Indication: PAIN
     Dosage: UNK
     Dates: start: 201306

REACTIONS (1)
  - Drug ineffective [Unknown]
